FAERS Safety Report 9250980 (Version 1)
Quarter: 2013Q1

REPORT INFORMATION
  Report Type: Spontaneous
  Country: US (occurrence: None)
  Receive Date: 20130305
  Receipt Date: 20130305
  Transmission Date: 20140127
  Serious: Yes (Other)
  Sender: FDA-Public Use
  Company Number: 163-21880-12100629

PATIENT
  Age: 75 Year
  Sex: Male

DRUGS (4)
  1. REVLIMID (LENALIDOMIDE) (CAPSULES) [Suspect]
     Indication: PLASMA CELL MYELOMA
     Dosage: 05/19/2011 - UNKNOWN, CAPSULE, 25 MG, 12 IN 12 D, PO
  2. CYANOCOBALAMIN (CYANOCOBALAMIN) [Concomitant]
  3. OXYCODONE HCL (OXYCODONE HYDROCHLORIDE) [Concomitant]
  4. EFUDEX (FLUOROURACIL) [Concomitant]

REACTIONS (2)
  - Pruritus [None]
  - Full blood count decreased [None]
